FAERS Safety Report 4341512-9 (Version None)
Quarter: 2004Q2

REPORT INFORMATION
  Report Type: 
  Country: None (occurrence: None)
  Receive Date: 20040415
  Receipt Date: 20040331
  Transmission Date: 20050107
  Serious: Yes (Death, Hospitalization)
  Sender: FDA-Public Use
  Company Number: GBS980400328

PATIENT
  Age: 68 Year
  Sex: Male

DRUGS (2)
  1. GEMZAR [Suspect]
     Indication: METASTASES TO LIVER
     Dosage: 1250 MG/M2/1 ONCE PER WEEK FOR THREE WEEKS
     Dates: start: 19960701
  2. PREDNISONE [Concomitant]

REACTIONS (13)
  - ACUTE RESPIRATORY DISTRESS SYNDROME [None]
  - BLOOD GLUCOSE INCREASED [None]
  - CREPITATIONS [None]
  - CYANOSIS [None]
  - DIFFUSE ALVEOLAR DAMAGE [None]
  - HAEMOGLOBIN DECREASED [None]
  - HEART RATE INCREASED [None]
  - NEOPLASM [None]
  - PLATELET COUNT DECREASED [None]
  - PULMONARY NECROSIS [None]
  - PULMONARY TOXICITY [None]
  - RESPIRATORY ALKALOSIS [None]
  - RESPIRATORY RATE INCREASED [None]
